FAERS Safety Report 19792872 (Version 30)
Quarter: 2023Q2

REPORT INFORMATION
  Report Type: Report from Study
  Country: US (occurrence: US)
  Receive Date: 20210906
  Receipt Date: 20230405
  Transmission Date: 20230722
  Serious: Yes (Other)
  Sender: FDA-Public Use
  Company Number: US-TAKEDA-2021TUS054631

PATIENT
  Age: 60 Year
  Sex: Female
  Weight: 47 kg

DRUGS (15)
  1. HUMAN IMMUNOGLOBULIN G [Suspect]
     Active Substance: HUMAN IMMUNOGLOBULIN G
     Indication: Immunodeficiency common variable
     Dosage: 10 GRAM, 1/WEEK
     Route: 058
     Dates: start: 20210814
  2. HUMAN IMMUNOGLOBULIN G [Suspect]
     Active Substance: HUMAN IMMUNOGLOBULIN G
     Indication: Primary immunodeficiency syndrome
     Dosage: 10 GRAM, 1/WEEK
     Route: 058
     Dates: start: 20210814
  3. HUMAN IMMUNOGLOBULIN G [Suspect]
     Active Substance: HUMAN IMMUNOGLOBULIN G
     Indication: Immunodeficiency
  4. BENADRYL [Suspect]
     Active Substance: DIPHENHYDRAMINE HYDROCHLORIDE
     Indication: Product used for unknown indication
     Dosage: UNK
     Route: 065
  5. DIPHENHYDRAMINE [Concomitant]
     Active Substance: DIPHENHYDRAMINE
     Dosage: UNK
     Route: 065
  6. VITAMIN D [Concomitant]
     Active Substance: VITAMIN D NOS
     Dosage: UNK
     Route: 065
  7. CLARITIN [Concomitant]
     Active Substance: LORATADINE
     Dosage: UNK
     Route: 065
  8. EPINEPHRINE [Concomitant]
     Active Substance: EPINEPHRINE
     Dosage: UNK
     Route: 065
  9. MAGNESIUM CARBONATE [Concomitant]
     Active Substance: MAGNESIUM CARBONATE
     Dosage: UNK
     Route: 065
  10. ACETAMINOPHEN [Concomitant]
     Active Substance: ACETAMINOPHEN
     Dosage: UNK
     Route: 065
  11. CETIRIZINE HYDROCHLORIDE [Concomitant]
     Active Substance: CETIRIZINE HYDROCHLORIDE
     Dosage: UNK
     Route: 065
  12. SYNTHROID [Concomitant]
     Active Substance: LEVOTHYROXINE SODIUM
     Dosage: UNK
     Route: 065
  13. Lmx [Concomitant]
     Dosage: UNK
     Route: 065
  14. ALEVE [Concomitant]
     Active Substance: NAPROXEN SODIUM
     Dosage: UNK
     Route: 065
  15. MAGNESIUM [Concomitant]
     Active Substance: MAGNESIUM
     Dosage: UNK
     Route: 065

REACTIONS (49)
  - Loss of consciousness [Unknown]
  - Infective tenosynovitis [Unknown]
  - Sinusitis bacterial [Unknown]
  - Syncope [Unknown]
  - Autoimmune disorder [Unknown]
  - Asthenia [Unknown]
  - Stress [Unknown]
  - Fatigue [Not Recovered/Not Resolved]
  - Headache [Recovered/Resolved]
  - Infusion site rash [Recovered/Resolved]
  - Skin exfoliation [Unknown]
  - Joint swelling [Recovered/Resolved]
  - Eye swelling [Unknown]
  - Migraine [Unknown]
  - Infusion related reaction [Unknown]
  - Dizziness [Recovering/Resolving]
  - Respiratory tract infection [Unknown]
  - Ear infection [Unknown]
  - Hypersomnia [Unknown]
  - Ear swelling [Recovered/Resolved]
  - Musculoskeletal stiffness [Recovered/Resolved]
  - Disorientation [Unknown]
  - Dry skin [Unknown]
  - Periorbital swelling [Unknown]
  - Tendon rupture [Unknown]
  - Localised infection [Unknown]
  - Infection [Unknown]
  - Arthritis [Unknown]
  - Immune system disorder [Unknown]
  - Inflammation [Unknown]
  - Exposure to fungus [Unknown]
  - Weight decreased [Unknown]
  - Obsessive-compulsive disorder [Unknown]
  - Ill-defined disorder [Unknown]
  - Infusion site warmth [Unknown]
  - Brain fog [Unknown]
  - Influenza like illness [Recovered/Resolved]
  - Rash erythematous [Recovered/Resolved]
  - Erythema [Unknown]
  - Chills [Unknown]
  - Pain [Unknown]
  - Malaise [Recovering/Resolving]
  - Infusion site swelling [Unknown]
  - Infusion site erythema [Unknown]
  - Diarrhoea [Unknown]
  - Blood pressure increased [Recovered/Resolved]
  - Product storage error [Unknown]
  - Product dose omission issue [Unknown]
  - Inappropriate schedule of product administration [Unknown]

NARRATIVE: CASE EVENT DATE: 20220816
